FAERS Safety Report 14671461 (Version 1)
Quarter: 2018Q1

REPORT INFORMATION
  Report Type: Spontaneous
  Country: US (occurrence: US)
  Receive Date: 20180323
  Receipt Date: 20180323
  Transmission Date: 20180509
  Serious: Yes (Other)
  Sender: FDA-Public Use
  Company Number: US-AMGEN-USASP2018018698

PATIENT
  Age: 65 Year
  Sex: Female

DRUGS (1)
  1. PROLIA [Suspect]
     Active Substance: DENOSUMAB
     Indication: OSTEOPOROSIS POSTMENOPAUSAL
     Dosage: Q6H
     Route: 065
     Dates: start: 2013

REACTIONS (11)
  - Mobility decreased [Unknown]
  - Road traffic accident [Unknown]
  - Multiple fractures [Unknown]
  - Malaise [Not Recovered/Not Resolved]
  - Fall [Unknown]
  - Shock [Unknown]
  - Tooth impacted [Unknown]
  - Dental caries [Unknown]
  - Nasopharyngitis [Not Recovered/Not Resolved]
  - Cough [Unknown]
  - Dyspnoea [Unknown]
